FAERS Safety Report 5449298-1 (Version None)
Quarter: 2007Q3

REPORT INFORMATION
  Report Type: 
  Country: None (occurrence: None)
  Receive Date: 20070911
  Receipt Date: 20070830
  Transmission Date: 20080115
  Serious: Yes (Disabling)
  Sender: FDA-Public Use
  Company Number: GB-PFIZER INC-2007072567

PATIENT
  Age: 77 Year
  Sex: Male
  Weight: 204 kg

DRUGS (2)
  1. XALATAN [Suspect]
     Indication: OCULAR HYPERTENSION
     Route: 047
     Dates: start: 20061001, end: 20070701
  2. LOSARTAN POSTASSIUM [Concomitant]
     Route: 048

REACTIONS (1)
  - HEADACHE [None]
